FAERS Safety Report 9410810 (Version 1)
Quarter: 2013Q3

REPORT INFORMATION
  Report Type: Spontaneous
  Country: HU (occurrence: HU)
  Receive Date: 20130719
  Receipt Date: 20130719
  Transmission Date: 20140515
  Serious: Yes (Hospitalization)
  Sender: FDA-Public Use
  Company Number: HU-PFIZER INC-2013208751

PATIENT
  Age: 43 Year
  Sex: Male

DRUGS (4)
  1. ATORVASTATIN CALCIUM [Suspect]
     Dosage: 20 MG, PER DAY
     Dates: start: 2011
  2. FENOFIBRATE [Suspect]
     Dosage: 160 MG, PER DAY
     Dates: start: 2011
  3. VARENICLINE TARTRATE [Concomitant]
     Indication: SMOKING CESSATION THERAPY
     Dosage: UNK
     Dates: start: 2011, end: 2011
  4. NEBIVOLOL [Concomitant]
     Indication: HYPERTENSION
     Dosage: 2.5 MG, PER DAY

REACTIONS (2)
  - Myositis [Recovered/Resolved]
  - Rhabdomyolysis [Recovered/Resolved]
